FAERS Safety Report 21957319 (Version 1)
Quarter: 2023Q1

REPORT INFORMATION
  Report Type: Spontaneous
  Country: US (occurrence: None)
  Receive Date: 20230203
  Receipt Date: 20230203
  Transmission Date: 20230418
  Serious: Yes (Other)
  Sender: FDA-Public Use
  Company Number: None

PATIENT
  Age: 64 Year
  Sex: Female
  Weight: 74.25 kg

DRUGS (4)
  1. ZOLPIDEM [Suspect]
     Active Substance: ZOLPIDEM TARTRATE
     Indication: Insomnia
     Dosage: 1 TABLET AT BEDTIME ORAL?
     Route: 048
     Dates: start: 20230131, end: 20230201
  2. ROSUVASTATIN [Concomitant]
     Active Substance: ROSUVASTATIN
  3. VITAMIN D3 [Concomitant]
     Active Substance: CHOLECALCIFEROL
  4. VITAMIN B12 [Concomitant]
     Active Substance: CYANOCOBALAMIN

REACTIONS (6)
  - Swelling face [None]
  - Headache [None]
  - Dyspnoea [None]
  - Chest discomfort [None]
  - Oral pruritus [None]
  - Urticaria [None]

NARRATIVE: CASE EVENT DATE: 20230131
